FAERS Safety Report 9199718 (Version 1)
Quarter: 2013Q1

REPORT INFORMATION
  Report Type: Spontaneous
  Country: FR (occurrence: FR)
  Receive Date: 20130329
  Receipt Date: 20130329
  Transmission Date: 20140127
  Serious: Yes (Hospitalization)
  Sender: FDA-Public Use
  Company Number: FR-PFIZER INC-2013098512

PATIENT
  Age: 80 Year
  Sex: Female

DRUGS (8)
  1. ALDACTONE [Suspect]
     Indication: HYPERTENSION
     Dosage: 25 MG, UNK
     Route: 048
     Dates: end: 20120714
  2. RASILEZ HCT [Suspect]
     Indication: HYPERTENSION
     Dosage: 300MG/12.5MG, 1 DF, 1X/DAY
     Route: 048
  3. FLECAINE [Concomitant]
     Dosage: 100 MG, 1X/DAY
     Route: 048
  4. BISOPROLOL FUMARATE [Concomitant]
     Dosage: 3.75 MG, 1X/DAY
     Route: 048
  5. XANAX [Concomitant]
     Dosage: 0.5 MG, 2X/DAY (2 DF, 2X/DAY)
     Route: 048
  6. XANAX [Concomitant]
     Dosage: 0.5 MG, 1X/DAY (1 DF, 1X/DAY)
     Route: 048
  7. DOLIPRANE [Concomitant]
     Dosage: 500 MG, 4X/DAY
     Route: 048
  8. ACETYLSALICYLATE LYSINE [Concomitant]
     Dosage: 75 MG, UNK

REACTIONS (3)
  - Asthenia [Recovered/Resolved]
  - Diarrhoea [Recovered/Resolved]
  - Hyponatraemia [Recovered/Resolved]
